FAERS Safety Report 5671765-6 (Version None)
Quarter: 2008Q1

REPORT INFORMATION
  Report Type: 
  Country: None (occurrence: None)
  Receive Date: 20080318
  Receipt Date: 20080311
  Transmission Date: 20080703
  Serious: Yes (Hospitalization)
  Sender: FDA-Public Use
  Company Number: DE-ALLERGAN-0802977US

PATIENT
  Sex: Female
  Weight: 60 kg

DRUGS (2)
  1. BOTOX [Suspect]
     Indication: HYPERTONIC BLADDER
     Dosage: 300 UNITS, SINGLE
     Route: 030
     Dates: start: 20070123, end: 20070123
  2. BOTOX [Suspect]
     Dosage: 300 UNITS, SINGLE
     Route: 030
     Dates: start: 20080212, end: 20080212

REACTIONS (1)
  - RESPIRATORY DISORDER [None]
